FAERS Safety Report 10347651 (Version 1)
Quarter: 2014Q3

REPORT INFORMATION
  Report Type: Spontaneous
  Country: US (occurrence: None)
  Receive Date: 20140728
  Receipt Date: 20140728
  Transmission Date: 20150326
  Serious: Yes (Hospitalization)
  Sender: FDA-Public Use
  Company Number: None

PATIENT
  Age: 34 Year
  Sex: Male
  Weight: 77.3 kg

DRUGS (1)
  1. HUMIRA [Suspect]
     Active Substance: ADALIMUMAB
     Indication: PSORIASIS
     Dosage: 5 DOSES ONLY, 40 MG EVERY OTHER WEEK SQ
     Route: 058

REACTIONS (5)
  - Weight increased [None]
  - Muscle tightness [None]
  - Acne [None]
  - Pain in extremity [None]
  - Constipation [None]

NARRATIVE: CASE EVENT DATE: 20140508
